FAERS Safety Report 25550133 (Version 5)
Quarter: 2025Q4

REPORT INFORMATION
  Report Type: Spontaneous
  Country: EU (occurrence: EU)
  Receive Date: 20250714
  Receipt Date: 20251028
  Transmission Date: 20260118
  Serious: Yes (Death)
  Sender: JOHNSON AND JOHNSON
  Company Number: EU-JNJFOC-20250710089

PATIENT
  Sex: Male
  Weight: 79 kg

DRUGS (3)
  1. RYBREVANT [Suspect]
     Active Substance: AMIVANTAMAB-VMJW
     Indication: Non-small cell lung cancer metastatic
     Route: 065
     Dates: end: 20250625
  2. RYBREVANT [Suspect]
     Active Substance: AMIVANTAMAB-VMJW
     Route: 065
     Dates: start: 20250611, end: 20250620
  3. OSIMERTINIB [Concomitant]
     Active Substance: OSIMERTINIB
     Indication: Product used for unknown indication

REACTIONS (4)
  - Duodenal ulcer perforation [Fatal]
  - Peritonitis [Fatal]
  - Infusion related reaction [Unknown]
  - Anxiety [Unknown]
